FAERS Safety Report 23842287 (Version 2)
Quarter: 2024Q3

REPORT INFORMATION
  Report Type: Spontaneous
  Country: JP (occurrence: JP)
  Receive Date: 20240510
  Receipt Date: 20240726
  Transmission Date: 20241016
  Serious: Yes (Death, Other)
  Sender: GENMAB
  Company Number: JP-GENMAB-2024-01553

PATIENT
  Age: 64 Year
  Sex: Male

DRUGS (4)
  1. EPKINLY [Suspect]
     Active Substance: EPCORITAMAB-BYSP
     Indication: Diffuse large B-cell lymphoma
     Dosage: UNK, FIRST DOSE, SECOND DOSE
     Route: 058
     Dates: start: 20240315, end: 202403
  2. EPKINLY [Suspect]
     Active Substance: EPCORITAMAB-BYSP
     Indication: Follicular lymphoma
     Dosage: 48 MILLIGRAM
     Route: 058
     Dates: start: 2024, end: 2024
  3. CORTICOTROPIN [Suspect]
     Active Substance: CORTICOTROPIN
     Dosage: UNK
     Dates: end: 2024
  4. DEXAMETHASONE [Concomitant]
     Active Substance: DEXAMETHASONE
     Dosage: UNK, THE DAY OF AND A FEW DAYS AFTER ADMINISTRATION OF EPKINLY
     Dates: start: 202403, end: 202404

REACTIONS (3)
  - Cytokine release syndrome [Recovering/Resolving]
  - Myocardial infarction [Fatal]
  - Thrombosis [Unknown]

NARRATIVE: CASE EVENT DATE: 20240101
